FAERS Safety Report 4978301-8 (Version None)
Quarter: 2006Q2

REPORT INFORMATION
  Report Type: 
  Country: None (occurrence: None)
  Receive Date: 20060420
  Receipt Date: 20060321
  Transmission Date: 20061013
  Serious: Yes (Hospitalization)
  Sender: FDA-Public Use
  Company Number: US-NOVOPROD-251820

PATIENT
  Age: 66 Year
  Sex: Female
  Weight: 95 kg

DRUGS (11)
  1. AVANDIA [Concomitant]
     Dosage: 4 MG, QD
     Route: 048
  2. LOVASTIN [Concomitant]
     Dosage: 20 MG, QD
     Route: 048
  3. ZIAC [Concomitant]
     Dosage: 5-6.25 MG, QD
     Route: 048
  4. NOVOLOG [Concomitant]
     Dosage: 35 U, QD
     Route: 058
  5. TRICOR [Concomitant]
     Dosage: 145 MG, QD
     Route: 048
  6. ANTIVERT ^PFIZER^ [Concomitant]
     Dosage: 14.5 MG, QD
     Route: 048
  7. ACTONEL [Concomitant]
     Dosage: Q WEEK
     Route: 048
  8. ENAPRIL ^EXCELL^ [Concomitant]
     Dosage: 20 MG, QD
     Route: 048
  9. ECOTRIN [Concomitant]
     Dosage: 325 MG, QD
     Route: 048
  10. INSULIN DETEMIR FLEXPEN [Suspect]
     Indication: INSULIN-REQUIRING TYPE II DIABETES MELLITUS
     Dosage: 41 U, QD
     Route: 058
     Dates: start: 20060110, end: 20060316
  11. INSULIN DETEMIR FLEXPEN [Suspect]
     Dosage: 41 U, QD
     Route: 058
     Dates: start: 20060321

REACTIONS (2)
  - PANCREATITIS [None]
  - PNEUMONIA [None]
